FAERS Safety Report 20745911 (Version 1)
Quarter: 2022Q2

REPORT INFORMATION
  Report Type: Spontaneous
  Country: US (occurrence: None)
  Receive Date: 20220424
  Receipt Date: 20220424
  Transmission Date: 20220721
  Serious: No
  Sender: FDA-Public Use
  Company Number: None

PATIENT
  Age: 68 Year
  Sex: Female
  Weight: 64.8 kg

DRUGS (9)
  1. REPATHA [Suspect]
     Active Substance: EVOLOCUMAB
     Indication: Blood cholesterol increased
     Dosage: OTHER QUANTITY : 2 INJECTION(S);?OTHER FREQUENCY : 2 TIMES MONTHLY;?OTHER ROUTE : INJECTED INTO STOM
     Route: 050
  2. LOSARTAN [Concomitant]
     Active Substance: LOSARTAN
  3. REPATHA [Concomitant]
     Active Substance: EVOLOCUMAB
  4. ACYCLOVIR [Concomitant]
     Active Substance: ACYCLOVIR
  5. VITAMINS [Concomitant]
     Active Substance: VITAMINS
  6. VITAMIN C [Concomitant]
     Active Substance: ASCORBIC ACID
  7. BIOTIN [Concomitant]
     Active Substance: BIOTIN
  8. OMEGA-3 ACIDS [Concomitant]
     Active Substance: OMEGA-3 FATTY ACIDS
  9. ASPIRIN [Concomitant]
     Active Substance: ASPIRIN

REACTIONS (3)
  - Chest pain [None]
  - Abdominal pain [None]
  - Injection site haematoma [None]

NARRATIVE: CASE EVENT DATE: 20220423
